FAERS Safety Report 7810992-6 (Version None)
Quarter: 2011Q4

REPORT INFORMATION
  Report Type: 
  Country: None (occurrence: None)
  Receive Date: 20111013
  Receipt Date: 20111003
  Transmission Date: 20120403
  Serious: Yes (Other)
  Sender: FDA-Public Use
  Company Number: FR-CELGENEUS-056-21880-11090993

PATIENT
  Sex: Male

DRUGS (10)
  1. DEXAMETHASONE [Concomitant]
     Indication: MULTIPLE MYELOMA
     Route: 065
     Dates: start: 20090101, end: 20090701
  2. ASPIRIN [Concomitant]
     Dosage: 160 MILLIGRAM
     Route: 048
     Dates: start: 20080601
  3. ACETAMINOPHEN [Concomitant]
     Indication: PAIN
     Dosage: 3 GRAM
     Route: 048
     Dates: start: 20090201
  4. PHENOXYMETHYL PENICILLIN [Concomitant]
     Dosage: 1 INTERNATIONAL UNITS MILLIONS
     Route: 048
  5. POLYETHYLENE GLYCOL [Concomitant]
     Dosage: 10 GRAM
     Route: 048
  6. REVLIMID [Suspect]
     Indication: MULTIPLE MYELOMA
     Dosage: 4.2857 MILLIGRAM
     Route: 048
     Dates: start: 20090101
  7. UN-ALFA [Concomitant]
     Dosage: .25 MICROGRAM
     Route: 065
  8. MAGNE B6 [Concomitant]
     Dosage: 1 DOSAGE FORMS
     Route: 048
  9. TADENAN [Concomitant]
     Dosage: 100 MILLIGRAM
     Route: 048
  10. REVLIMID [Suspect]
     Dosage: 6.4286 MILLIGRAM
     Route: 048
     Dates: start: 20100618, end: 20100701

REACTIONS (2)
  - MYELODYSPLASTIC SYNDROME [None]
  - PANCYTOPENIA [None]
